FAERS Safety Report 5571328-7 (Version None)
Quarter: 2007Q4

REPORT INFORMATION
  Report Type: 
  Country: None (occurrence: None)
  Receive Date: 20071221
  Receipt Date: 20070716
  Transmission Date: 20080405
  Serious: No
  Sender: FDA-Public Use
  Company Number: A0664330A

PATIENT
  Age: 69 Year
  Sex: Female

DRUGS (10)
  1. FLONASE [Suspect]
     Dosage: 2SPR PER DAY
     Route: 045
     Dates: start: 20060501
  2. FOSAMAX [Concomitant]
  3. ZOCOR [Concomitant]
  4. MELATONIN [Concomitant]
  5. CALCIUM [Concomitant]
  6. ASCORBIC ACID [Concomitant]
  7. ASPIRIN [Concomitant]
  8. FOLIC ACID [Concomitant]
  9. CENTRUM [Concomitant]
  10. FISH OILS [Concomitant]

REACTIONS (1)
  - DYSGEUSIA [None]
